FAERS Safety Report 7138192 (Version 3)
Quarter: 2013Q1

REPORT INFORMATION
  Report Type: Spontaneous
  Country: US (occurrence: US)
  Receive Date: 20091002
  Receipt Date: 20130321
  Transmission Date: 20140127
  Serious: Yes (Other)
  Sender: FDA-Public Use
  Company Number: US-ASTRAZENECA-2009UW14048

PATIENT
  Age: 74 Year
  Sex: Female
  Weight: 61.7 kg

DRUGS (8)
  1. ARIMIDEX [Suspect]
     Indication: BREAST CANCER FEMALE
     Route: 048
     Dates: start: 200802, end: 201201
  2. ARIMIDEX [Suspect]
     Indication: BREAST CANCER FEMALE
     Route: 048
     Dates: start: 2013
  3. AROMASIN [Suspect]
     Route: 065
  4. HYDROCHLOROTHIAZIDE [Concomitant]
     Indication: HYPERTENSION
  5. BENICAR [Concomitant]
     Indication: HYPERTENSION
  6. VITAMINS [Concomitant]
  7. SUPPLEMENTS [Concomitant]
  8. HOMEOPATHIC IMMUNOSUPPRESENTS [Concomitant]

REACTIONS (2)
  - Tumour marker increased [Unknown]
  - Bone pain [Unknown]
